FAERS Safety Report 8507450-2 (Version None)
Quarter: 2012Q3

REPORT INFORMATION
  Report Type: 
  Country: None (occurrence: None)
  Receive Date: 20120712
  Receipt Date: 20120702
  Transmission Date: 20120928
  Serious: Yes (Death, Hospitalization, Other)
  Sender: FDA-Public Use
  Company Number: JP-TEVA-2011004124

PATIENT
  Sex: Male
  Weight: 66 kg

DRUGS (8)
  1. REBAMIPIDE [Concomitant]
     Indication: GASTRITIS
     Dosage: 300 MILLIGRAM;
     Dates: start: 20110222, end: 20111213
  2. ACYCLOVIR [Concomitant]
     Indication: PROPHYLAXIS
     Dosage: 200 MILLIGRAM;
     Dates: start: 20110222, end: 20110726
  3. COIX SEED [Concomitant]
     Indication: SKIN PAPILLOMA
     Dates: start: 20110303, end: 20110330
  4. ALLOPURINOL [Concomitant]
     Indication: HYPERURICAEMIA
     Dosage: 100 MILLIGRAM;
     Dates: start: 20110303, end: 20110525
  5. BENDAMUSTINE HYDROCHLORIDE [Suspect]
     Route: 042
     Dates: start: 20110324, end: 20110325
  6. BENDAMUSTINE HYDROCHLORIDE [Suspect]
     Route: 042
     Dates: start: 20110421, end: 20110422
  7. BENDAMUSTINE HYDROCHLORIDE [Suspect]
     Indication: B-CELL LYMPHOMA
     Route: 042
     Dates: start: 20110222, end: 20110223
  8. SULFAMETHOXAZOLE AND TRIMETHOPRIM [Concomitant]
     Indication: PROPHYLAXIS
     Dosage: 1 TABLET;
     Dates: start: 20110222, end: 20111213

REACTIONS (9)
  - CYTOMEGALOVIRUS INFECTION [None]
  - HEPATITIS [None]
  - MULTI-ORGAN FAILURE [None]
  - ENTEROCOLITIS [None]
  - CARDIO-RESPIRATORY ARREST [None]
  - RETINITIS [None]
  - DIARRHOEA [None]
  - HYPERKALAEMIA [None]
  - RENAL FAILURE [None]
